FAERS Safety Report 25319496 (Version 1)
Quarter: 2025Q2

REPORT INFORMATION
  Report Type: Spontaneous
  Country: US (occurrence: None)
  Receive Date: 20250515
  Receipt Date: 20250515
  Transmission Date: 20250717
  Serious: Yes (Life-Threatening, Disabling)
  Sender: FDA-CTU
  Company Number: None

PATIENT
  Age: 34 Year
  Sex: Female
  Weight: 58.5 kg

DRUGS (2)
  1. LEXAPRO [Suspect]
     Active Substance: ESCITALOPRAM OXALATE
     Indication: Panic attack
     Dates: start: 20220412
  2. PROPRANOLOL [Concomitant]
     Active Substance: PROPRANOLOL HYDROCHLORIDE

REACTIONS (17)
  - Drug withdrawal syndrome [None]
  - Panic attack [None]
  - Suicidal ideation [None]
  - Hypertension [None]
  - Derealisation [None]
  - Fear [None]
  - Insomnia [None]
  - Weight decreased [None]
  - Gastrointestinal disorder [None]
  - Anhedonia [None]
  - Anxiety [None]
  - Agoraphobia [None]
  - Autophobia [None]
  - Intrusive thoughts [None]
  - Therapy interrupted [None]
  - Hormone level abnormal [None]
  - Postural orthostatic tachycardia syndrome [None]

NARRATIVE: CASE EVENT DATE: 20220412
